FAERS Safety Report 8959626 (Version 2)
Quarter: 2013Q1

REPORT INFORMATION
  Report Type: Spontaneous
  Country: TR (occurrence: TR)
  Receive Date: 20121212
  Receipt Date: 20130103
  Transmission Date: 20140127
  Serious: Yes (Other)
  Sender: FDA-Public Use
  Company Number: TR-AMGEN-TURSP2012076001

PATIENT
  Age: 80 Year
  Sex: Male

DRUGS (5)
  1. ENBREL [Suspect]
     Indication: PRODUCT USED FOR UNKNOWN INDICATION
     Dosage: 25 MG, UNK
  2. NORVASC [Concomitant]
     Dosage: 10 MG, DAILY
  3. GLUCOPHAGE [Concomitant]
     Dosage: 1000 MG, 2X/DAY
  4. EBIXA [Concomitant]
     Dosage: UNK
  5. SEROQUEL [Concomitant]
     Dosage: 25 MG, UNK

REACTIONS (4)
  - Off label use [Unknown]
  - Lung infection [Unknown]
  - Wrong technique in drug usage process [Unknown]
  - Therapeutic response unexpected [Unknown]
